FAERS Safety Report 25191523 (Version 1)
Quarter: 2025Q2

REPORT INFORMATION
  Report Type: Spontaneous
  Country: US (occurrence: None)
  Receive Date: 20250412
  Receipt Date: 20250412
  Transmission Date: 20250717
  Serious: Yes (Disabling, Other)
  Sender: FDA-CTU
  Company Number: None

PATIENT
  Age: 45 Year
  Sex: Female
  Weight: 72.45 kg

DRUGS (10)
  1. HYALURONATE [Suspect]
     Active Substance: HYALURONIC ACID
     Indication: Arthropathy
     Route: 050
  2. HYDROCORTISONE [Suspect]
     Active Substance: HYDROCORTISONE
     Indication: Arthropathy
     Route: 050
     Dates: start: 20241101, end: 20241101
  3. TRANEXAMIC ACID [Concomitant]
     Active Substance: TRANEXAMIC ACID
  4. CHOLECALCIFEROL [Concomitant]
     Active Substance: CHOLECALCIFEROL
  5. Gel One [Concomitant]
  6. HYDROCORTISONE [Concomitant]
     Active Substance: HYDROCORTISONE
  7. AMMONIUM LACTATE [Concomitant]
     Active Substance: AMMONIUM LACTATE
  8. Norelgestromin + Ethinyl Estradiol [Concomitant]
  9. Unrefined Coconut Oil [Concomitant]
  10. Petroleum Jelly [Concomitant]

REACTIONS (6)
  - Application site discolouration [None]
  - Injection site rash [None]
  - Contusion [None]
  - Swelling [None]
  - Tenderness [None]
  - Feeling hot [None]

NARRATIVE: CASE EVENT DATE: 20250226
